FAERS Safety Report 24714870 (Version 1)
Quarter: 2024Q4

REPORT INFORMATION
  Report Type: Spontaneous
  Country: EG (occurrence: EG)
  Receive Date: 20241210
  Receipt Date: 20241210
  Transmission Date: 20250115
  Serious: Yes (Disabling)
  Sender: SANDOZ
  Company Number: EG-002147023-NVSC2024EG217083

PATIENT
  Sex: Male
  Weight: 77 kg

DRUGS (6)
  1. CARVEDILOL [Suspect]
     Active Substance: CARVEDILOL
     Indication: Hypertension
     Dosage: 6.25 MG, QD (1 TAB IN THE MORNING)
     Route: 048
     Dates: start: 2022
  2. EMPAGLIFLOZIN [Suspect]
     Active Substance: EMPAGLIFLOZIN
     Indication: Diabetes mellitus
     Dosage: 50 MG, QD, 25 MG, BID (1 TAB WHILE BREAKFAST AND 1 TAB WHILE LUNCH) (START DATE: JAN OR FEB 2022)
     Route: 048
     Dates: start: 2022
  3. ENTRESTO [Suspect]
     Active Substance: SACUBITRIL\VALSARTAN
     Indication: Cardiac failure
     Dosage: 100 MG, QD, 50 MG, BID (1 TAB IN THE MORNING AND 1 TAB IN THE EVENING)
     Route: 048
     Dates: start: 20240903, end: 20241003
  4. EXFORGE [Suspect]
     Active Substance: AMLODIPINE BESYLATE\VALSARTAN
     Indication: Hypertension
     Dosage: 1 DF, QD, 1 DOSAGE FORM (5/160/12.5 MG), QD (HEARTCARE PROGRAM)
     Route: 048
     Dates: start: 2022
  5. METHOTREXATE [Suspect]
     Active Substance: METHOTREXATE
     Indication: Rheumatoid arthritis
     Dosage: 7 DF, 7 UNITS PER WEEK
     Route: 058
  6. GLIMEPIRIDE\PIOGLITAZONE HYDROCHLORIDE [Suspect]
     Active Substance: GLIMEPIRIDE\PIOGLITAZONE HYDROCHLORIDE
     Indication: Diabetes mellitus
     Dosage: 1 DF, QD, 1 TAB WHILE DINNER (START DATE: JAN OR FEB 2022)
     Route: 048
     Dates: start: 2022

REACTIONS (3)
  - Rheumatoid arthritis [Recovering/Resolving]
  - Adverse drug reaction [Unknown]
  - Productive cough [Recovered/Resolved]

NARRATIVE: CASE EVENT DATE: 20240101
